FAERS Safety Report 10409413 (Version 1)
Quarter: 2014Q3

REPORT INFORMATION
  Report Type: Spontaneous
  Country: US (occurrence: None)
  Receive Date: 20140825
  Receipt Date: 20140825
  Transmission Date: 20150326
  Serious: No
  Sender: FDA-Public Use
  Company Number: None

PATIENT
  Age: 70 Year
  Sex: Male
  Weight: 89.36 kg

DRUGS (2)
  1. TAMSULOSIN 0.4 MG [Suspect]
     Active Substance: TAMSULOSIN
     Indication: PROSTATOMEGALY
     Dosage: 1 ONCE DAILY TAKEN BY MOUTH
     Route: 048
     Dates: start: 20140206, end: 20140819
  2. TAMSULOSIN 0.4 MG [Suspect]
     Active Substance: TAMSULOSIN
     Dosage: 1 ONCE DAILY TAKEN BY MOUTH
     Route: 048
     Dates: start: 20140206, end: 20140819

REACTIONS (2)
  - Dyskinesia [None]
  - Angina pectoris [None]

NARRATIVE: CASE EVENT DATE: 20140801
